FAERS Safety Report 4911132-3 (Version None)
Quarter: 2006Q1

REPORT INFORMATION
  Report Type: 
  Country: None (occurrence: None)
  Receive Date: 20060209
  Receipt Date: 20060120
  Transmission Date: 20060701
  Serious: Yes (Life-Threatening, Hospitalization)
  Sender: FDA-Public Use
  Company Number: 221763

PATIENT
  Age: 56 Year
  Sex: Male

DRUGS (5)
  1. AVASTIN [Suspect]
     Indication: COLON CANCER
     Dosage: 630 MG
     Dates: start: 20050830, end: 20051025
  2. CAPECITABINE (CAPECITABINE) [Suspect]
     Indication: COLON CANCER
     Dosage: 2000 MG Q14D ORAL
     Route: 048
     Dates: start: 20050830, end: 20051025
  3. OXALIPLATIN (OXALIPLATIN) [Suspect]
     Indication: COLON CANCER
     Dosage: 257 Q3W INTRAVENOUS
     Route: 042
     Dates: start: 20050830, end: 20051025
  4. ACETAMINOPHEN [Concomitant]
  5. VITAMIN B6 [Concomitant]

REACTIONS (14)
  - BLOOD PRESSURE DECREASED [None]
  - BODY TEMPERATURE INCREASED [None]
  - CHOLECYSTITIS INFECTIVE [None]
  - DIARRHOEA [None]
  - DYSPNOEA [None]
  - ESCHERICHIA INFECTION [None]
  - ILEUS [None]
  - MELAENA [None]
  - NAUSEA [None]
  - OXYGEN SATURATION DECREASED [None]
  - PNEUMONIA ASPIRATION [None]
  - SEPSIS [None]
  - SMALL INTESTINAL OBSTRUCTION [None]
  - SUBDIAPHRAGMATIC ABSCESS [None]
